FAERS Safety Report 8946917 (Version 2)
Quarter: 2012Q4

REPORT INFORMATION
  Report Type: Report from Study
  Country: DE (occurrence: DE)
  Receive Date: 20121205
  Receipt Date: 20121218
  Transmission Date: 20130627
  Serious: Yes (Hospitalization)
  Sender: FDA-Public Use
  Company Number: DE-GLAXOSMITHKLINE-B0849943A

PATIENT
  Sex: Female
  Weight: 53 kg

DRUGS (5)
  1. LAPATINIB [Suspect]
     Indication: BREAST NEOPLASM
     Dosage: 750MG Per day
     Route: 048
     Dates: start: 20120709
  2. HERCEPTIN [Suspect]
     Indication: BREAST NEOPLASM
     Dosage: 330MG Every 3 weeks
     Route: 042
     Dates: start: 20120709
  3. MYOCET [Suspect]
     Indication: BREAST NEOPLASM
     Dosage: 33MG Weekly
     Route: 042
     Dates: start: 20120709
  4. TAXOL [Suspect]
     Indication: BREAST NEOPLASM
     Dosage: 132MG Weekly
     Route: 042
     Dates: start: 20120709
  5. PANTOZOL [Concomitant]

REACTIONS (1)
  - Pneumonia [Recovered/Resolved]
